FAERS Safety Report 9297087 (Version 3)
Quarter: 2013Q3

REPORT INFORMATION
  Report Type: Report from Study
  Country: BR (occurrence: BR)
  Receive Date: 20130518
  Receipt Date: 20130818
  Transmission Date: 20140515
  Serious: Yes (Other)
  Sender: FDA-Public Use
  Company Number: BR-US-EMD SERONO, INC.-7211336

PATIENT
  Age: 33 Year
  Sex: Female

DRUGS (6)
  1. REBIF [Suspect]
     Indication: RELAPSING-REMITTING MULTIPLE SCLEROSIS
     Dates: start: 20130208, end: 201305
  2. REBIF [Suspect]
     Dates: start: 20130603
  3. EXODUS [Concomitant]
     Indication: PRODUCT USED FOR UNKNOWN INDICATION
  4. PURAN T4 [Concomitant]
     Indication: PRODUCT USED FOR UNKNOWN INDICATION
     Dates: start: 201306
  5. COLLAGEN [Concomitant]
     Indication: PRODUCT USED FOR UNKNOWN INDICATION
  6. OMEGA 3 [Concomitant]
     Indication: PRODUCT USED FOR UNKNOWN INDICATION

REACTIONS (9)
  - Pneumonia [Recovered/Resolved]
  - Gastrointestinal bacterial infection [Not Recovered/Not Resolved]
  - Sinusitis [Unknown]
  - Malaise [Unknown]
  - Nasopharyngitis [Unknown]
  - Pain [Unknown]
  - Pyrexia [Recovered/Resolved]
  - Injection site erythema [Unknown]
  - Injection site bruising [Not Recovered/Not Resolved]
